FAERS Safety Report 24200822 (Version 1)
Quarter: 2024Q3

REPORT INFORMATION
  Report Type: Spontaneous
  Country: FR (occurrence: FR)
  Receive Date: 20240812
  Receipt Date: 20240812
  Transmission Date: 20241017
  Serious: Yes (Death, Hospitalization, Other)
  Sender: MYLAN
  Company Number: None

PATIENT
  Age: 56 Year
  Sex: Male
  Weight: 66 kg

DRUGS (2)
  1. ABIRATERONE [Suspect]
     Active Substance: ABIRATERONE
     Indication: Prostate cancer
     Dosage: 1000 MILLIGRAM, QD
     Route: 048
     Dates: start: 20240506, end: 20240604
  2. TRIPTORELIN PAMOATE [Suspect]
     Active Substance: TRIPTORELIN PAMOATE
     Indication: Prostate cancer
     Dosage: 1 DOSAGE FORM, QD, EXTENDED-RELEASE ON 3 MONTHS
     Route: 058
     Dates: start: 20240506, end: 20240506

REACTIONS (2)
  - Cardiac failure [Fatal]
  - Hepatitis [Recovering/Resolving]

NARRATIVE: CASE EVENT DATE: 20240603
